FAERS Safety Report 17560437 (Version 2)
Quarter: 2020Q2

REPORT INFORMATION
  Report Type: Spontaneous
  Country: US (occurrence: US)
  Receive Date: 20200319
  Receipt Date: 20200429
  Transmission Date: 20200713
  Serious: No
  Sender: FDA-Public Use
  Company Number: NVSC2020US074593

PATIENT
  Sex: Female
  Weight: 160 kg

DRUGS (1)
  1. XIIDRA [Suspect]
     Active Substance: LIFITEGRAST
     Indication: DRY EYE
     Dosage: 1 GTT, BID
     Route: 047

REACTIONS (4)
  - Product dose omission [Unknown]
  - Blood pressure abnormal [Unknown]
  - Malaise [Unknown]
  - Product quality issue [Unknown]
